FAERS Safety Report 23263326 (Version 1)
Quarter: 2023Q4

REPORT INFORMATION
  Report Type: Spontaneous
  Country: US (occurrence: US)
  Receive Date: 20231205
  Receipt Date: 20231205
  Transmission Date: 20240109
  Serious: Yes (Hospitalization, Other)
  Sender: FDA-Public Use
  Company Number: US-APOTEX-2023AP017484

PATIENT
  Age: 77 Year
  Sex: Male

DRUGS (13)
  1. AZELASTINE HYDROCHLORIDE [Suspect]
     Active Substance: AZELASTINE HYDROCHLORIDE
     Indication: Sinus operation
     Dosage: 4 DOSAGE FORM, BID
     Route: 045
     Dates: start: 2022, end: 202311
  2. AZELASTINE HYDROCHLORIDE [Suspect]
     Active Substance: AZELASTINE HYDROCHLORIDE
     Indication: Choking
  3. AZELASTINE HYDROCHLORIDE [Suspect]
     Active Substance: AZELASTINE HYDROCHLORIDE
     Indication: Nasal congestion
  4. TIMOLOL [Concomitant]
     Active Substance: TIMOLOL
     Indication: Glaucoma
     Dosage: 2 GTT DROPS, BID IN THE MORNING
     Route: 047
  5. TIMOLOL [Concomitant]
     Active Substance: TIMOLOL
     Indication: Prophylaxis
  6. PROTONIX [Concomitant]
     Active Substance: PANTOPRAZOLE SODIUM
     Indication: Gastrooesophageal reflux disease
     Dosage: 40 MILLIGRAM, Q.AM
     Route: 065
  7. VASOTEC [Concomitant]
     Active Substance: ENALAPRIL MALEATE
     Indication: Hypertension
     Dosage: 5 MILLIGRAM, QD
     Route: 065
  8. ASPIRIN [Concomitant]
     Active Substance: ASPIRIN
     Indication: Anticoagulant therapy
     Dosage: 1000 MILLIGRAM, Q.WK. (81MG ONCE A DAY BUT HE DOUBLES IT TWICE A WEEK DURING TUESDAY AND FRIDAY)
     Route: 065
  9. ELIQUIS [Concomitant]
     Active Substance: APIXABAN
     Indication: Anticoagulant therapy
     Dosage: 2.5 MILLIGRAM, PRN (ONLY WHEN HE TRAVELS)
     Route: 065
  10. VITAMINS NOS [Concomitant]
     Active Substance: VITAMINS
     Indication: Supplementation therapy
     Dosage: 400 MILLIGRAM
     Route: 065
  11. VITAMIN D3 [Concomitant]
     Active Substance: CHOLECALCIFEROL
     Indication: Supplementation therapy
     Dosage: 200 MILLIGRAM
     Route: 065
  12. DOXYCYCLINE [Concomitant]
     Active Substance: DOXYCYCLINE
     Indication: Rosacea
     Dosage: 100 MILLIGRAM, BID
     Route: 065
  13. TAMSULOSIN [Concomitant]
     Active Substance: TAMSULOSIN
     Indication: Urinary tract disorder
     Dosage: 0.4 MILLIGRAM, QD
     Route: 065

REACTIONS (4)
  - Transient global amnesia [Recovered/Resolved]
  - Depressed level of consciousness [Unknown]
  - Electroencephalogram abnormal [Unknown]
  - Expired product administered [Unknown]

NARRATIVE: CASE EVENT DATE: 20231101
